FAERS Safety Report 8223583-2 (Version None)
Quarter: 2012Q1

REPORT INFORMATION
  Report Type: 
  Country: None (occurrence: None)
  Receive Date: 20120321
  Receipt Date: 20120318
  Transmission Date: 20120608
  Serious: No
  Sender: FDA-Public Use
  Company Number: US-PFIZER INC-2012070377

PATIENT
  Sex: Female
  Weight: 13.152 kg

DRUGS (1)
  1. CHILDREN'S ADVIL [Suspect]
     Indication: EAR DISORDER
     Dosage: DAILY
     Route: 048
     Dates: start: 20120318

REACTIONS (2)
  - FEELING ABNORMAL [None]
  - PSYCHOMOTOR HYPERACTIVITY [None]
